FAERS Safety Report 5940018-0 (Version None)
Quarter: 2008Q4

REPORT INFORMATION
  Report Type: 
  Country: None (occurrence: None)
  Receive Date: 20081030
  Receipt Date: 20081020
  Transmission Date: 20090506
  Serious: Yes (Hospitalization)
  Sender: FDA-Public Use
  Company Number: 2008BI025411

PATIENT
  Age: 57 Year
  Sex: Male

DRUGS (1)
  1. AVONEX [Suspect]
     Indication: MULTIPLE SCLEROSIS
     Dosage: 30 UG;QW;IM, 30 UG;QW;IM
     Route: 030
     Dates: start: 20050114

REACTIONS (5)
  - FEMUR FRACTURE [None]
  - HAEMORRHAGE [None]
  - HYPERTENSION [None]
  - ROAD TRAFFIC ACCIDENT [None]
  - THERMAL BURN [None]
